FAERS Safety Report 6162803-5 (Version None)
Quarter: 2009Q2

REPORT INFORMATION
  Report Type: 
  Country: None (occurrence: None)
  Receive Date: 20090421
  Receipt Date: 20070924
  Transmission Date: 20091009
  Serious: Yes (Other)
  Sender: FDA-Public Use
  Company Number: US-SOLVAY-00207033533

PATIENT
  Age: 58 Year
  Sex: Female

DRUGS (1)
  1. ANDROGEL [Suspect]
     Indication: ACCIDENTAL EXPOSURE
     Dosage: DAILY DOSE: 10 GRAM(S)
     Route: 062
     Dates: start: 20020101, end: 20070830

REACTIONS (1)
  - HYPERSENSITIVITY [None]
